FAERS Safety Report 9369921 (Version 1)
Quarter: 2013Q2

REPORT INFORMATION
  Report Type: Spontaneous
  Country: US (occurrence: None)
  Receive Date: 20130625
  Receipt Date: 20130625
  Transmission Date: 20140414
  Serious: No
  Sender: FDA-Public Use
  Company Number: None

PATIENT
  Age: 49 Year
  Sex: Female

DRUGS (5)
  1. XOLAIR [Suspect]
     Dosage: RECONSTITUTE THE VIAL WITH 1.4 ML SETRILE WATER FOR INJECTION AND INJECT 150 MG (1.2 ML) SUB1 EVERY 4 WEEKS AS DIRECTED
     Dates: start: 20130623, end: 20130623
  2. PREDNISONE [Concomitant]
  3. ASMANEX [Concomitant]
  4. ALBUTEROL [Concomitant]
  5. NEXIUM [Concomitant]

REACTIONS (2)
  - Pruritus [None]
  - Skin disorder [None]
